FAERS Safety Report 7015592-6 (Version None)
Quarter: 2010Q3

REPORT INFORMATION
  Report Type: 
  Country: None (occurrence: None)
  Receive Date: 20100927
  Receipt Date: 20100924
  Transmission Date: 20110219
  Serious: Yes (Life-Threatening, Hospitalization, Other)
  Sender: FDA-Public Use
  Company Number: AU-BRISTOL-MYERS SQUIBB COMPANY-15061294

PATIENT
  Age: 81 Year
  Sex: Female
  Weight: 59 kg

DRUGS (2)
  1. CISPLATIN [Suspect]
     Indication: GASTROOESOPHAGEAL CANCER
     Dosage: DAY1 OF CYCLE;DRUG INTERRUPTED ON 13APR10.MOST RECENT INF ON 26MAR10, TEMPORARY DISCON ON 05APR10
     Route: 042
     Dates: start: 20100326, end: 20100326
  2. CAPECITABINE [Suspect]
     Indication: GASTROOESOPHAGEAL CANCER
     Dosage: TABLET,DAY 1-15; INTERRUPTED ON 05APR2010. MOST RECENT INF ON 05APR10.13APR10 WITHDRAWN FROM STUDY
     Route: 048
     Dates: start: 20100326, end: 20100405

REACTIONS (3)
  - DEHYDRATION [None]
  - MUCOSAL INFLAMMATION [None]
  - NEUTROPENIA [None]
